FAERS Safety Report 15342479 (Version 1)
Quarter: 2018Q3

REPORT INFORMATION
  Report Type: Report from Study
  Country: US (occurrence: US)
  Receive Date: 20180902
  Receipt Date: 20180902
  Transmission Date: 20181010
  Serious: Yes (Hospitalization)
  Sender: FDA-Public Use
  Company Number: US-BAXTER-2018BAX022647

PATIENT
  Age: 70 Year
  Sex: Male

DRUGS (12)
  1. MESNA FOR INJECTION 1 GRAM [Suspect]
     Active Substance: MESNA
     Indication: PRODUCT USED FOR UNKNOWN INDICATION
     Dosage: REGIMEN A: DAILY OVER 24 HOURS FOR 3 DAYS ON DAYS 1?3
     Route: 042
  2. RITUXIMAB. [Suspect]
     Active Substance: RITUXIMAB
     Indication: PRODUCT USED FOR UNKNOWN INDICATION
     Dosage: REGIMEN A: ON DAY 2 AND DAY 8 IN CYCLES 1 AND 3 ONLY
     Route: 042
  3. METHOTREXATE SODIUM. [Suspect]
     Active Substance: METHOTREXATE SODIUM
     Dosage: REGIMEN B: CONTINUOUS INFUSION OVER 22 HOURS ON DAY 1
     Route: 042
  4. DEXAMETHASONE PHOSPHATE [Suspect]
     Active Substance: DEXAMETHASONE PHOSPHATE
     Indication: PRODUCT USED FOR UNKNOWN INDICATION
     Dosage: REGIMEN A: DAILY FOR 4 DAYS ON DAYS 1?4 AND DAYS 11?14
     Route: 042
  5. RITUXIMAB. [Suspect]
     Active Substance: RITUXIMAB
     Dosage: REGIMEN B: ON DAY 2 AND 8 OF CYCLES 2 AND 4
     Route: 042
  6. PEGFILGRASTIM [Suspect]
     Active Substance: PEGFILGRASTIM
     Dosage: REGIMEN B: ON DAY 4 UNTIL RECOVERY OF GRANULOCYTE COUNT
     Route: 058
  7. INOTUZUMAB OZOGAMICIN [Suspect]
     Active Substance: INOTUZUMAB OZOGAMICIN
     Indication: ACUTE LYMPHOCYTIC LEUKAEMIA
     Dosage: REGIMEN A: IV OVER 1 HOUR ON DAY 3; REGIMEN B: IV ON DAY 2 OR 3 (CYCLES 2 AND 4 ONLY)
     Route: 042
     Dates: start: 20171108, end: 20180208
  8. METHOTREXATE SODIUM. [Suspect]
     Active Substance: METHOTREXATE SODIUM
     Indication: PRODUCT USED FOR UNKNOWN INDICATION
     Dosage: REGIMEN B: OVER 2 HOURS ON DAY 1
     Route: 042
  9. VINCRISTINE SULFATE. [Suspect]
     Active Substance: VINCRISTINE SULFATE
     Indication: PRODUCT USED FOR UNKNOWN INDICATION
     Dosage: REGIMEN A, DAY 1 AND DAY 8
     Route: 042
  10. ARA?C [Suspect]
     Active Substance: CYTARABINE
     Indication: PRODUCT USED FOR UNKNOWN INDICATION
     Dosage: REGIMEN B: OVER 3 HOURS TWICE A DAY ON DAYS 2 AND 3 TOTAL OF 4 DOSES
     Route: 042
  11. CYCLOPHOSPHAMIDE FOR INJECTION, USP [Suspect]
     Active Substance: CYCLOPHOSPHAMIDE
     Indication: PRODUCT USED FOR UNKNOWN INDICATION
     Dosage: REGIMEN A: OVER 3 HOURS, TWICE IN A DAY ON DAYS 1?3
     Route: 042
  12. PEGFILGRASTIM [Suspect]
     Active Substance: PEGFILGRASTIM
     Indication: PRODUCT USED FOR UNKNOWN INDICATION
     Dosage: REGIMEN A: ON DAY 4 UNTIL RECOVERY OF GRANULOCYTE COUNT
     Route: 058

REACTIONS (2)
  - Neoplasm progression [Unknown]
  - Central nervous system leukaemia [Unknown]

NARRATIVE: CASE EVENT DATE: 20180710
